FAERS Safety Report 7714762-9 (Version None)
Quarter: 2011Q3

REPORT INFORMATION
  Report Type: 
  Country: None (occurrence: None)
  Receive Date: 20110822
  Receipt Date: 20110804
  Transmission Date: 20111222
  Serious: Yes (Life-Threatening, Hospitalization, Other)
  Sender: FDA-Public Use
  Company Number: 2011MA011375

PATIENT
  Age: 71 Year
  Sex: Female

DRUGS (4)
  1. POVIDONE IODINE [Suspect]
     Indication: PREMEDICATION
  2. POVIDONE IODINE [Suspect]
     Indication: CYST REMOVAL
  3. LIDOCAINE [Suspect]
     Indication: PREMEDICATION
     Dosage: 10 ML 1%;ED
  4. LIDOCAINE [Suspect]
     Indication: CYST REMOVAL
     Dosage: 10 ML 1%;ED

REACTIONS (5)
  - HYPOTENSION [None]
  - BRADYCARDIA [None]
  - RASH ERYTHEMATOUS [None]
  - CARDIOVASCULAR INSUFFICIENCY [None]
  - CARDIAC ARREST [None]
